FAERS Safety Report 5664848-8 (Version None)
Quarter: 2008Q1

REPORT INFORMATION
  Report Type: 
  Country: None (occurrence: None)
  Receive Date: 20080314
  Receipt Date: 20080304
  Transmission Date: 20080703
  Serious: Yes (Death, Hospitalization)
  Sender: FDA-Public Use
  Company Number: FR-PFIZER INC-2007023996

PATIENT
  Sex: Female
  Weight: 63 kg

DRUGS (1)
  1. SU-011,248 [Suspect]
     Indication: NON-SMALL CELL LUNG CANCER
     Route: 048
     Dates: start: 20070109, end: 20070205

REACTIONS (1)
  - ADRENAL INSUFFICIENCY [None]
